FAERS Safety Report 16312702 (Version 7)
Quarter: 2019Q4

REPORT INFORMATION
  Report Type: Spontaneous
  Country: CA (occurrence: CA)
  Receive Date: 20190515
  Receipt Date: 20191008
  Transmission Date: 20200122
  Serious: Yes (Hospitalization)
  Sender: FDA-Public Use
  Company Number: CA-CELLTRION INC.-2019CA021068

PATIENT

DRUGS (7)
  1. INFLECTRA [Suspect]
     Active Substance: INFLIXIMAB-DYYB
     Dosage: 400 MG, EVERY 2,6 WEEKS THEN EVERY 8 WEEKS
     Route: 042
     Dates: start: 20190522
  2. INFLECTRA [Suspect]
     Active Substance: INFLIXIMAB-DYYB
     Dosage: 400 MG, EVERY 2,6 WEEKS THEN EVERY 8 WEEKS
     Route: 042
     Dates: start: 20190911
  3. PENTASA [Concomitant]
     Active Substance: MESALAMINE
     Dosage: UNK
     Route: 065
  4. PREDNISONE. [Concomitant]
     Active Substance: PREDNISONE
     Dosage: 40 MG, TAPER 1 TAB Q (EVERY) WEEKLY
     Route: 065
  5. INFLECTRA [Suspect]
     Active Substance: INFLIXIMAB-DYYB
     Indication: CROHN^S DISEASE
     Dosage: 400 MG, EVERY 2,6 WEEKS THEN EVERY 8 WEEKS
     Route: 042
     Dates: start: 20190408
  6. INFLECTRA [Suspect]
     Active Substance: INFLIXIMAB-DYYB
     Dosage: 400 MG, EVERY 2,6 WEEKS THEN EVERY 8 WEEKS
     Route: 042
     Dates: start: 20190424
  7. INFLECTRA [Suspect]
     Active Substance: INFLIXIMAB-DYYB
     Dosage: 400 MG, EVERY 2,6 WEEKS THEN EVERY 8 WEEKS
     Route: 042
     Dates: start: 20190719

REACTIONS (4)
  - Condition aggravated [Unknown]
  - Off label use [Unknown]
  - Body temperature fluctuation [Unknown]
  - Inappropriate schedule of product administration [Unknown]

NARRATIVE: CASE EVENT DATE: 20190719
